FAERS Safety Report 19836729 (Version 1)
Quarter: 2021Q3

REPORT INFORMATION
  Report Type: Spontaneous
  Country: US (occurrence: US)
  Receive Date: 20210914
  Receipt Date: 20210914
  Transmission Date: 20211014
  Serious: No
  Sender: FDA-Public Use
  Company Number: US-TAKEDA-2021TUS055312

PATIENT
  Sex: Female
  Weight: 61 kg

DRUGS (3)
  1. VYVANSE [Suspect]
     Active Substance: LISDEXAMFETAMINE DIMESYLATE
     Indication: PRODUCT USE IN UNAPPROVED INDICATION
     Dosage: 40 MILLIGRAM, QD
     Route: 065
  2. CLONIDINE. [Concomitant]
     Active Substance: CLONIDINE
  3. XANAX [Concomitant]
     Active Substance: ALPRAZOLAM

REACTIONS (5)
  - Drug ineffective [Unknown]
  - Frustration tolerance decreased [Unknown]
  - Product physical issue [Unknown]
  - Tongue geographic [Unknown]
  - Incorrect dose administered [Unknown]
